FAERS Safety Report 7690945-1 (Version None)
Quarter: 2011Q3

REPORT INFORMATION
  Report Type: 
  Country: None (occurrence: None)
  Receive Date: 20110818
  Receipt Date: 20110805
  Transmission Date: 20111222
  Serious: Yes (Other)
  Sender: FDA-Public Use
  Company Number: US-UCBSA-027342

PATIENT
  Sex: Female

DRUGS (3)
  1. CIMZIA [Suspect]
     Route: 058
  2. CIMZIA [Suspect]
     Route: 058
  3. CIMZIA [Suspect]
     Indication: CROHN'S DISEASE
     Route: 058
     Dates: start: 20090220

REACTIONS (6)
  - NASOPHARYNGITIS [None]
  - CAESAREAN SECTION [None]
  - BLOOD IRON DECREASED [None]
  - SINUSITIS [None]
  - FATIGUE [None]
  - PREGNANCY [None]
